FAERS Safety Report 5373219-3 (Version None)
Quarter: 2007Q2

REPORT INFORMATION
  Report Type: 
  Country: None (occurrence: None)
  Receive Date: 20070628
  Receipt Date: 20070622
  Transmission Date: 20071010
  Serious: Yes (Hospitalization)
  Sender: FDA-Public Use
  Company Number: PHEH2007US06437

PATIENT
  Age: 57 Year
  Sex: Female

DRUGS (14)
  1. ZELNORM [Suspect]
     Dosage: UNK, UNK
     Route: 048
  2. ASMANEX TWISTHALER [Concomitant]
     Dosage: 2 PUFFS, QHS
  3. ASPIRIN [Concomitant]
     Dosage: 325 MG, QD
     Route: 048
  4. ATENOLOL [Concomitant]
     Dosage: 25 MG, QD
     Route: 048
  5. CLOPIDOGREL [Concomitant]
     Dosage: 75 MG, QD
     Route: 048
  6. ELAVIL [Concomitant]
     Dosage: 150 MG, QHS
  7. POTASSIUM ACETATE [Concomitant]
     Dosage: 20 MEQ, QD
     Route: 048
  8. NASONEX [Concomitant]
     Dosage: 50 UG, QD
  9. NITROGLYCERIN [Concomitant]
     Dosage: 0.4 MG, PRN
     Route: 060
  10. PREVACID [Concomitant]
     Dosage: 30 MG, QD
     Route: 048
  11. SIMVASTATIN [Concomitant]
     Dosage: 40 MG, QD
     Route: 048
  12. TRICOR [Concomitant]
     Dosage: 48 MG, QD
     Route: 048
  13. ZETIA [Concomitant]
     Dosage: 10 UNK, QD
  14. ZYRTEC [Concomitant]
     Dosage: 10 MG, QD
     Route: 048

REACTIONS (1)
  - CARDIAC DISORDER [None]
